FAERS Safety Report 8400509-X (Version None)
Quarter: 2012Q2

REPORT INFORMATION
  Report Type: 
  Country: None (occurrence: None)
  Receive Date: 20120531
  Receipt Date: 20120518
  Transmission Date: 20120825
  Serious: No
  Sender: FDA-Public Use
  Company Number: US-ASTRAZENECA-2012SE32326

PATIENT
  Age: 72 Year
  Sex: Male
  Weight: 76.2 kg

DRUGS (21)
  1. VITAMIN E [Concomitant]
  2. SYMBICORT [Suspect]
     Dosage: 160/4.5, TWO PUFFS TWICE A DAY
     Route: 055
     Dates: start: 20120402, end: 20120415
  3. GARLIC [Concomitant]
  4. LYSINE [Concomitant]
  5. ADVAIR DISKUS 100/50 [Concomitant]
  6. SPIRIVA [Concomitant]
  7. ASPIRIN [Concomitant]
  8. GLUCOSAMINE [Concomitant]
  9. AVODART [Concomitant]
  10. LOVASTATIN [Concomitant]
  11. COQ10 [Concomitant]
  12. LISINOPRIL [Concomitant]
     Route: 048
  13. OMEGA FISH OIL [Concomitant]
  14. CALCIUM [Concomitant]
  15. SYMBICORT [Suspect]
     Indication: CHRONIC OBSTRUCTIVE PULMONARY DISEASE
     Dosage: 160/4.5, TWO PUFFS ONCE A DAY
     Route: 055
  16. POTASSIUM CHLORIDE [Concomitant]
  17. DOXAZOSIN MESYLATE [Concomitant]
  18. SYMBICORT [Suspect]
     Dosage: 160/4.5, TWO PUFFS DAILY
     Route: 055
  19. CINNAMON [Concomitant]
  20. VITAMIN D [Concomitant]
  21. LUTEIN [Concomitant]

REACTIONS (3)
  - INTENTIONAL DRUG MISUSE [None]
  - DYSPNOEA EXERTIONAL [None]
  - OFF LABEL USE [None]
